FAERS Safety Report 9926461 (Version 1)
Quarter: 2014Q1

REPORT INFORMATION
  Report Type: Spontaneous
  Country: US (occurrence: US)
  Receive Date: 20140226
  Receipt Date: 20140226
  Transmission Date: 20141002
  Serious: No
  Sender: FDA-Public Use
  Company Number: US-AMGEN-USASP2013069895

PATIENT
  Age: 54 Year
  Sex: Male
  Weight: 79 kg

DRUGS (2)
  1. ENBREL [Suspect]
     Indication: PRODUCT USED FOR UNKNOWN INDICATION
     Dosage: 50 MG, TWICE A WEEK FOR THREE MONTHS
     Route: 058
  2. AMLODIPINE [Concomitant]
     Dosage: 10 MG, UNK

REACTIONS (2)
  - Injection site mass [Unknown]
  - Injection site warmth [Unknown]
